FAERS Safety Report 8132304-3 (Version None)
Quarter: 2012Q1

REPORT INFORMATION
  Report Type: 
  Country: None (occurrence: None)
  Receive Date: 20120207
  Receipt Date: 20120124
  Transmission Date: 20120608
  Serious: Yes (Hospitalization)
  Sender: FDA-Public Use
  Company Number: 1000027598

PATIENT
  Age: 43 Year
  Sex: Male

DRUGS (5)
  1. PROPRANOLOL [Suspect]
     Indication: SUICIDE ATTEMPT
     Dosage: (2 G, ONCE) ORAL
     Route: 048
     Dates: start: 20110801, end: 20110801
  2. ALCOHOL (ETHANOL) (- ETHANOL) [Concomitant]
  3. LEXOMIL (BROMAZEPAM) (BROMAZEPAM) [Concomitant]
  4. TETRAZEPAM (TETRAZEPAM) (50 MILLIGRAM) [Suspect]
     Indication: SUICIDE ATTEMPT
     Dosage: (500 MG, ONCE), ORAL
     Route: 048
     Dates: start: 20110801, end: 20110801
  5. ESCITALOPRAM OXALATE [Suspect]
     Indication: SUICIDE ATTEMPT
     Dosage: 1 DOSAGE F (1 DOSAGE FORMS, 1 IN 1 D), ORAL; (280 MG, ONCE), ORAL
     Route: 048
     Dates: start: 20110801, end: 20110801

REACTIONS (2)
  - ALCOHOL USE [None]
  - TOXICITY TO VARIOUS AGENTS [None]
